FAERS Safety Report 23176380 (Version 2)
Quarter: 2023Q4

REPORT INFORMATION
  Report Type: Spontaneous
  Country: CZ (occurrence: None)
  Receive Date: 20231113
  Receipt Date: 20231121
  Transmission Date: 20240110
  Serious: No
  Sender: FDA-Public Use
  Company Number: CZ-ROCHE-3454092

PATIENT
  Age: 17 Year
  Sex: Male

DRUGS (1)
  1. HEMLIBRA [Suspect]
     Active Substance: EMICIZUMAB-KXWH
     Indication: Product used for unknown indication
     Dosage: HE RECEIVED HEMLIBRA 150 MG/1 ML
     Route: 058
     Dates: start: 202206

REACTIONS (2)
  - Haemarthrosis [Recovered/Resolved]
  - Treatment noncompliance [Unknown]
